FAERS Safety Report 18861123 (Version 3)
Quarter: 2021Q1

REPORT INFORMATION
  Report Type: Spontaneous
  Country: US (occurrence: US)
  Receive Date: 20210208
  Receipt Date: 20210327
  Transmission Date: 20210420
  Serious: Yes (Hospitalization)
  Sender: FDA-Public Use
  Company Number: NVSC2021US023316

PATIENT
  Sex: Female

DRUGS (1)
  1. ZOLGENSMA [Suspect]
     Active Substance: ONASEMNOGENE ABEPARVOVEC-XIOI
     Indication: SPINAL MUSCULAR ATROPHY
     Dosage: 1 DF, ONCE/SINGLE (1 UNIT)
     Route: 042
     Dates: start: 20191106

REACTIONS (6)
  - Dyspnoea [Unknown]
  - Cough [Unknown]
  - Dehydration [Unknown]
  - Pyrexia [Unknown]
  - Heart rate increased [Unknown]
  - Pneumonia [Unknown]
